FAERS Safety Report 7979974-8 (Version None)
Quarter: 2011Q4

REPORT INFORMATION
  Report Type: 
  Country: None (occurrence: None)
  Receive Date: 20111214
  Receipt Date: 20111207
  Transmission Date: 20120403
  Serious: No
  Sender: FDA-Public Use
  Company Number: US-BAYER-2011-117155

PATIENT
  Age: 45 Year
  Sex: Male
  Weight: 73 kg

DRUGS (8)
  1. PRISTIQ [Concomitant]
  2. ADDERALL XR 10 [Concomitant]
  3. ATIVAN [Concomitant]
  4. LAMOTRIGINE [Concomitant]
  5. IRON [IRON] [Concomitant]
     Dosage: UNK
  6. SINGULAIR [Concomitant]
  7. NASONEX [Concomitant]
  8. ALEVE (CAPLET) [Suspect]
     Indication: SWELLING
     Dosage: UNK
     Route: 048
     Dates: end: 20111201

REACTIONS (4)
  - STOMATITIS [None]
  - ORAL MUCOSAL DISCOLOURATION [None]
  - SKIN DISORDER [None]
  - SKIN EXFOLIATION [None]
